FAERS Safety Report 11885408 (Version 5)
Quarter: 2016Q1

REPORT INFORMATION
  Report Type: Report from Study
  Country: US (occurrence: US)
  Receive Date: 20160104
  Receipt Date: 20160301
  Transmission Date: 20160526
  Serious: Yes (Hospitalization, Other)
  Sender: FDA-Public Use
  Company Number: US-BAYER-2014-166625

PATIENT
  Age: 70 Year
  Sex: Female
  Weight: 107.48 kg

DRUGS (14)
  1. METOPROLOL. [Suspect]
     Active Substance: METOPROLOL
     Dosage: UNK
     Dates: start: 20150813
  2. OPSUMIT [Concomitant]
     Active Substance: MACITENTAN
  3. ADEMPAS [Suspect]
     Active Substance: RIOCIGUAT
     Indication: PULMONARY ARTERIAL HYPERTENSION
     Dosage: 2 MG, TID
     Route: 048
  4. ADEMPAS [Suspect]
     Active Substance: RIOCIGUAT
     Indication: PULMONARY ARTERIAL HYPERTENSION
     Dosage: 2 MG, TID
     Route: 048
  5. ADEMPAS [Suspect]
     Active Substance: RIOCIGUAT
     Indication: PULMONARY ARTERIAL HYPERTENSION
     Dosage: 0.5 MG, TID
     Route: 048
  6. ADEMPAS [Suspect]
     Active Substance: RIOCIGUAT
     Indication: PULMONARY ARTERIAL HYPERTENSION
     Dosage: 2.5 MG, TID
     Route: 048
     Dates: start: 2015
  7. ADEMPAS [Suspect]
     Active Substance: RIOCIGUAT
     Indication: PULMONARY ARTERIAL HYPERTENSION
     Dosage: 2 MG, TID
     Route: 048
  8. ADEMPAS [Suspect]
     Active Substance: RIOCIGUAT
     Indication: PULMONARY ARTERIAL HYPERTENSION
     Dosage: 2.5 MG, TID
     Route: 048
  9. ADEMPAS [Suspect]
     Active Substance: RIOCIGUAT
     Indication: PULMONARY ARTERIAL HYPERTENSION
     Dosage: 2.5 MG, TID
     Route: 048
  10. TYVASO [Suspect]
     Active Substance: TREPROSTINIL
     Indication: PULMONARY ARTERIAL HYPERTENSION
     Dosage: UNK
     Dates: start: 20121113
  11. ADEMPAS [Suspect]
     Active Substance: RIOCIGUAT
     Indication: PULMONARY ARTERIAL HYPERTENSION
     Dosage: UNK
     Dates: start: 20141020
  12. ADEMPAS [Suspect]
     Active Substance: RIOCIGUAT
     Indication: PULMONARY ARTERIAL HYPERTENSION
     Dosage: 2 MG, TID
     Route: 048
  13. ADEMPAS [Suspect]
     Active Substance: RIOCIGUAT
     Indication: PULMONARY ARTERIAL HYPERTENSION
     Dosage: 2.5 MG, TID
     Route: 048
  14. REMODULIN [Suspect]
     Active Substance: TREPROSTINIL
     Dosage: 10 NG/KG/MIN
     Route: 058
     Dates: start: 20151116

REACTIONS (40)
  - Device related infection [Unknown]
  - Oxygen supplementation [Unknown]
  - Oxygen supplementation [None]
  - Pain in extremity [None]
  - Dyspnoea [None]
  - Pulmonary hypertension [None]
  - Abdominal distension [None]
  - Alopecia [None]
  - Drug intolerance [None]
  - Neuropathy peripheral [None]
  - Anxiety [None]
  - Oxygen saturation decreased [None]
  - Speech disorder [Unknown]
  - Dizziness [Unknown]
  - Dizziness [None]
  - Product use issue [None]
  - Head discomfort [Unknown]
  - Dysarthria [None]
  - Asthenia [None]
  - Pleural effusion [Unknown]
  - Hypotension [Unknown]
  - Haemorrhoidal haemorrhage [None]
  - Gastrooesophageal reflux disease [None]
  - Blood pressure abnormal [Unknown]
  - Blood glucose abnormal [Unknown]
  - Muscular weakness [Unknown]
  - Chest discomfort [Unknown]
  - Asthenia [None]
  - Extra dose administered [None]
  - Anxiety [None]
  - Dysphonia [Unknown]
  - Palpitations [None]
  - Fatigue [None]
  - Anaemia [None]
  - Hospitalisation [Unknown]
  - Malaise [None]
  - Hypotension [None]
  - Extra dose administered [Unknown]
  - Musculoskeletal pain [None]
  - Intentional product misuse [None]

NARRATIVE: CASE EVENT DATE: 20141012
